FAERS Safety Report 9653664 (Version 1)
Quarter: 2013Q4

REPORT INFORMATION
  Report Type: Spontaneous
  Country: US (occurrence: None)
  Receive Date: 20131028
  Receipt Date: 20131028
  Transmission Date: 20140711
  Serious: Yes (Other)
  Sender: FDA-Public Use
  Company Number: FK2013047400

PATIENT
  Age: 56 Year
  Sex: Female

DRUGS (11)
  1. METHOTREXATE [Suspect]
     Indication: RHEUMATOID ARTHRITIS
  2. METHOTREXATE [Suspect]
     Indication: CHONDRITIS
  3. LEFLUNOMIDE [Suspect]
     Indication: RHEUMATOID ARTHRITIS
  4. LEFLUNOMIDE [Suspect]
     Indication: CHONDRITIS
  5. ETANERCEPT [Suspect]
     Indication: RHEUMATOID ARTHRITIS
  6. ETANERCEPT [Suspect]
     Indication: CHONDRITIS
  7. HYDROXYCHLOROQUINE [Suspect]
     Indication: RHEUMATOID ARTHRITIS
  8. HYDROXYCHLOROQUINE [Suspect]
     Indication: CHONDRITIS
  9. LOW-DOSE CORTICOSTEROIDS [Suspect]
     Indication: RHEUMATOID ARTHRITIS
  10. LOW-DOSE CORTICOSTEROIDS [Suspect]
     Indication: CHONDRITIS
  11. MITOMYCIN (MITOMYCIN) [Concomitant]

REACTIONS (2)
  - Mycobacterial infection [None]
  - Lung infection [None]
